FAERS Safety Report 12449255 (Version 1)
Quarter: 2016Q2

REPORT INFORMATION
  Report Type: Spontaneous
  Country: US (occurrence: US)
  Receive Date: 20160608
  Receipt Date: 20160608
  Transmission Date: 20160815
  Serious: No
  Sender: FDA-Public Use
  Company Number: US-VIIV HEALTHCARE LIMITED-US2016078736

PATIENT
  Sex: Male

DRUGS (7)
  1. LIPITOR [Concomitant]
     Active Substance: ATORVASTATIN CALCIUM
  2. DETROL [Concomitant]
     Active Substance: TOLTERODINE TARTRATE
  3. LUNESTA [Concomitant]
     Active Substance: ESZOPICLONE
  4. VIRACEPT [Concomitant]
     Active Substance: NELFINAVIR MESYLATE
     Indication: HIV INFECTION
     Dosage: TABLET
     Route: 048
     Dates: start: 2002, end: 2016
  5. LISINOPRIL. [Concomitant]
     Active Substance: LISINOPRIL
  6. TAMSULOSIN [Concomitant]
     Active Substance: TAMSULOSIN
  7. TRIUMEQ [Suspect]
     Active Substance: ABACAVIR SULFATE\DOLUTEGRAVIR SODIUM\LAMIVUDINE
     Indication: HIV INFECTION
     Dosage: UNK
     Dates: start: 201605

REACTIONS (10)
  - Oropharyngeal pain [Unknown]
  - Abdominal pain upper [Unknown]
  - Malaise [Unknown]
  - Dyspnoea [Unknown]
  - Dysgeusia [Unknown]
  - Anxiety [Unknown]
  - Cough [Unknown]
  - Tachycardia [Unknown]
  - Nausea [Unknown]
  - Hypotension [Unknown]
